FAERS Safety Report 26062174 (Version 1)
Quarter: 2025Q4

REPORT INFORMATION
  Report Type: Spontaneous
  Country: JP (occurrence: JP)
  Receive Date: 20251119
  Receipt Date: 20251119
  Transmission Date: 20260118
  Serious: Yes (Other)
  Sender: ROCHE
  Company Number: JP-CHUGAI-2025027524

PATIENT
  Age: 3 Decade
  Sex: Female
  Weight: 50 kg

DRUGS (3)
  1. ENSPRYNG [Suspect]
     Active Substance: SATRALIZUMAB-MWGE
     Indication: Neuromyelitis optica spectrum disorder
     Route: 058
  2. ENSPRYNG [Suspect]
     Active Substance: SATRALIZUMAB-MWGE
     Route: 058
  3. ENSPRYNG [Suspect]
     Active Substance: SATRALIZUMAB-MWGE
     Route: 058

REACTIONS (3)
  - Neutrophil count decreased [Recovered/Resolved]
  - Facial paralysis [Unknown]
  - Varicella zoster virus infection [Unknown]

NARRATIVE: CASE EVENT DATE: 20230101
